FAERS Safety Report 4527186-2 (Version None)
Quarter: 2004Q4

REPORT INFORMATION
  Report Type: 
  Country: None (occurrence: None)
  Receive Date: 20041214
  Receipt Date: 20041214
  Transmission Date: 20050328
  Serious: Yes (Life-Threatening)
  Sender: FDA-Public Use
  Company Number: None

PATIENT
  Age: 38 Year
  Sex: Male
  Weight: 67.1324 kg

DRUGS (3)
  1. COMBIVIR [Suspect]
     Indication: HIV INFECTION
     Dosage: 150/300 MG BID
     Dates: start: 20040402, end: 20040624
  2. INDINAVIR [Suspect]
     Indication: HIV INFECTION
     Dosage: 800 MG Q 8 H
     Dates: start: 20040402, end: 20040624
  3. SEROQUEL [Concomitant]

REACTIONS (1)
  - ANAEMIA [None]
